FAERS Safety Report 18766728 (Version 2)
Quarter: 2021Q1

REPORT INFORMATION
  Report Type: Spontaneous
  Country: FI (occurrence: FI)
  Receive Date: 20210121
  Receipt Date: 20210209
  Transmission Date: 20210419
  Serious: Yes (Hospitalization)
  Sender: FDA-Public Use
  Company Number: FI-BIOGEN-2021BI00968650

PATIENT
  Age: 36 Year
  Sex: Male

DRUGS (1)
  1. TECFIDERA [Suspect]
     Active Substance: DIMETHYL FUMARATE
     Indication: MULTIPLE SCLEROSIS
     Route: 065
     Dates: start: 2017

REACTIONS (5)
  - Infection [Unknown]
  - Branchial cleft sinus [Unknown]
  - Branchial cyst [Unknown]
  - Pain [Unknown]
  - Balance disorder [Unknown]

NARRATIVE: CASE EVENT DATE: 201911
